FAERS Safety Report 6447845-4 (Version None)
Quarter: 2009Q4

REPORT INFORMATION
  Report Type: 
  Country: None (occurrence: None)
  Receive Date: 20091120
  Receipt Date: 20091110
  Transmission Date: 20100525
  Serious: Yes (Other)
  Sender: FDA-Public Use
  Company Number: SE-PFIZER INC-2009295983

PATIENT
  Sex: Female

DRUGS (1)
  1. SYNAREL [Suspect]
     Route: 045

REACTIONS (1)
  - ABORTION SPONTANEOUS [None]
